FAERS Safety Report 18443099 (Version 4)
Quarter: 2021Q1

REPORT INFORMATION
  Report Type: Spontaneous
  Country: US (occurrence: US)
  Receive Date: 20201029
  Receipt Date: 20210329
  Transmission Date: 20210419
  Serious: Yes (Disabling, Other)
  Sender: FDA-Public Use
  Company Number: US-AKCEA THERAPEUTICS-2020IS001332

PATIENT
  Age: 67 Year
  Sex: Male

DRUGS (2)
  1. TEGSEDI [Suspect]
     Active Substance: INOTERSEN SODIUM
     Indication: HEREDITARY NEUROPATHIC AMYLOIDOSIS
     Route: 058
     Dates: start: 20190729
  2. ISSD (INTEGRATED SYRINGE SAFETY DEVICE) [Suspect]
     Active Substance: DEVICE

REACTIONS (11)
  - Hereditary neuropathic amyloidosis [Not Recovered/Not Resolved]
  - Urinary casts [Not Recovered/Not Resolved]
  - Protein urine present [Unknown]
  - Red blood cells urine positive [Not Recovered/Not Resolved]
  - Urine abnormality [Recovering/Resolving]
  - Crystal urine present [Not Recovered/Not Resolved]
  - Urine ketone body present [Unknown]
  - Urine protein/creatinine ratio increased [Not Recovered/Not Resolved]
  - Urine analysis abnormal [Unknown]
  - Nephrolithiasis [Unknown]
  - Platelet count decreased [Unknown]
